FAERS Safety Report 13841142 (Version 10)
Quarter: 2020Q2

REPORT INFORMATION
  Report Type: Report from Study
  Country: JP (occurrence: JP)
  Receive Date: 20170807
  Receipt Date: 20200401
  Transmission Date: 20200713
  Serious: Yes (Death, Hospitalization, Other)
  Sender: FDA-Public Use
  Company Number: JP-INCYTE CORPORATION-2017IN001289

PATIENT

DRUGS (8)
  1. JAKAVI [Suspect]
     Active Substance: RUXOLITINIB
     Dosage: 5 MG, BID
     Route: 048
     Dates: start: 20160107, end: 20160308
  2. VANCOMYCIN [Suspect]
     Active Substance: VANCOMYCIN
     Indication: DRUG ERUPTION
     Dosage: 0.6 G, UNK
     Route: 041
     Dates: start: 20170130
  3. JAKAVI [Suspect]
     Active Substance: RUXOLITINIB
     Dosage: 10 MG, BID
     Route: 048
     Dates: start: 20160309, end: 20170117
  4. JAKAVI [Suspect]
     Active Substance: RUXOLITINIB
     Dosage: 5 MG, QD
     Route: 048
     Dates: start: 20170726, end: 20171017
  5. CEFEPIME [Suspect]
     Active Substance: CEFEPIME HYDROCHLORIDE
     Indication: OSTEOMYELITIS
     Dosage: 2 G, UNK
     Route: 065
     Dates: start: 20170119, end: 20170129
  6. JAKAVI [Suspect]
     Active Substance: RUXOLITINIB
     Indication: POLYCYTHAEMIA VERA
     Dosage: 10 MG, BID
     Route: 048
     Dates: start: 20151007, end: 20160106
  7. JAKAVI [Suspect]
     Active Substance: RUXOLITINIB
     Dosage: 5 MG, BID
     Route: 048
     Dates: start: 20171018, end: 20171122
  8. JAKAVI [Suspect]
     Active Substance: RUXOLITINIB
     Dosage: 5 MG, BID
     Route: 048
     Dates: start: 20171220, end: 20180116

REACTIONS (23)
  - Renal impairment [Recovered/Resolved]
  - Lymphocyte count decreased [Unknown]
  - Meningitis [Recovered/Resolved]
  - Blood pressure systolic increased [Unknown]
  - Altered state of consciousness [Unknown]
  - Blood urea increased [Unknown]
  - Device breakage [Recovering/Resolving]
  - Acute kidney injury [Unknown]
  - Hepatic function abnormal [Recovered/Resolved]
  - Chronic kidney disease [Recovering/Resolving]
  - Encephalitis [Recovered/Resolved]
  - Infective spondylitis [Recovered/Resolved]
  - Splenic vein thrombosis [Fatal]
  - Cyst rupture [Unknown]
  - Polycythaemia vera [Fatal]
  - Drug eruption [Recovering/Resolving]
  - Cytopenia [Recovered/Resolved]
  - Bacteraemia [Recovered/Resolved]
  - Influenza [Not Recovered/Not Resolved]
  - Altered state of consciousness [Recovered/Resolved]
  - Mesenteric vein thrombosis [Fatal]
  - Arthritis bacterial [Recovering/Resolving]
  - Blood uric acid increased [Unknown]

NARRATIVE: CASE EVENT DATE: 20151221
